FAERS Safety Report 9880826 (Version 1)
Quarter: 2014Q1

REPORT INFORMATION
  Report Type: Spontaneous
  Country: US (occurrence: US)
  Receive Date: 20140207
  Receipt Date: 20140207
  Transmission Date: 20141002
  Serious: No
  Sender: FDA-Public Use
  Company Number: US-009507513-1402USA001888

PATIENT
  Age: 68 Year
  Sex: Female

DRUGS (7)
  1. JANUVIA [Suspect]
     Indication: TYPE 2 DIABETES MELLITUS
     Dosage: 100 MG, QD
     Route: 048
     Dates: start: 20131111
  2. MAXAIR [Concomitant]
  3. PULMICORT [Concomitant]
  4. ALLEGRA [Concomitant]
  5. ACIPHEX [Concomitant]
  6. PROZAC [Concomitant]
  7. METFORMIN [Concomitant]

REACTIONS (4)
  - Purulent discharge [Recovered/Resolved]
  - Upper respiratory tract infection [Unknown]
  - Influenza [Unknown]
  - Wheezing [Not Recovered/Not Resolved]
